FAERS Safety Report 4402399-9 (Version None)
Quarter: 2004Q3

REPORT INFORMATION
  Report Type: 
  Country: None (occurrence: None)
  Receive Date: 20040713
  Receipt Date: 20040701
  Transmission Date: 20050211
  Serious: Yes (Death, Life-Threatening, Hospitalization, Other)
  Sender: FDA-Public Use
  Company Number: 200410142BBE

PATIENT
  Age: 73 Year
  Sex: Female

DRUGS (4)
  1. PLASBUMIN-20 [Suspect]
     Dosage: INTRAVENOUS
     Route: 042
  2. LASIX-SLOW RELEASE [Concomitant]
  3. INSULIN [Concomitant]
  4. COROGEN [Concomitant]

REACTIONS (4)
  - ANAPHYLACTIC SHOCK [None]
  - MEDICATION TAMPERING [None]
  - PHARMACEUTICAL PRODUCT COMPLAINT [None]
  - VOMITING [None]
